FAERS Safety Report 4639946-8 (Version None)
Quarter: 2005Q2

REPORT INFORMATION
  Report Type: 
  Country: None (occurrence: None)
  Receive Date: 20050420
  Receipt Date: 20040223
  Transmission Date: 20051028
  Serious: Yes (Hospitalization, Other)
  Sender: FDA-Public Use
  Company Number: US-BRISTOL-MYERS SQUIBB COMPANY-12519583

PATIENT
  Age: 65 Year
  Sex: Female

DRUGS (13)
  1. SERZONE [Suspect]
     Indication: DEPRESSION
     Route: 048
     Dates: start: 19970417, end: 20020205
  2. INSULIN [Concomitant]
  3. PROPRANOLOL [Concomitant]
  4. MECLIZINE [Concomitant]
  5. SPIRONOLACTONE [Concomitant]
  6. HUMALOG [Concomitant]
  7. GLUCOPHAGE [Concomitant]
  8. CARDURA [Concomitant]
  9. PRILOSEC [Concomitant]
  10. NORVASC [Concomitant]
  11. OXYCONTIN [Concomitant]
  12. LACTULOSE [Concomitant]
  13. ANTIVERT [Concomitant]

REACTIONS (14)
  - ANAEMIA [None]
  - CHOLELITHIASIS [None]
  - COAGULOPATHY [None]
  - CRYPTOGENIC CIRRHOSIS [None]
  - HEPATIC ENCEPHALOPATHY [None]
  - HEPATIC FAILURE [None]
  - HEPATITIS B [None]
  - HEPATOSPLENOMEGALY [None]
  - LYMPHADENOPATHY [None]
  - PANCREATITIS ACUTE [None]
  - POLYP [None]
  - THROMBOCYTOPENIA [None]
  - TRANSIENT ISCHAEMIC ATTACK [None]
  - VARICES OESOPHAGEAL [None]
